FAERS Safety Report 5301150-8 (Version None)
Quarter: 2007Q1

REPORT INFORMATION
  Report Type: 
  Country: None (occurrence: None)
  Receive Date: 20070201
  Receipt Date: 20061219
  Transmission Date: 20070707
  Serious: No
  Sender: FDA-Public Use
  Company Number: 2006PV027183

PATIENT
  Age: 62 Year
  Sex: Female

DRUGS (6)
  1. BYETTA [Suspect]
     Indication: DIABETES MELLITUS NON-INSULIN-DEPENDENT
     Dosage: 5 MCG;BID;SC
     Route: 058
     Dates: start: 20061031
  2. PREDNISONE TAB [Concomitant]
  3. LEVATOL [Concomitant]
  4. HUMALOG INSULIN 75/25 [Concomitant]
  5. HUMALOG MIX 75/25 [Concomitant]
  6. INSULIN [Concomitant]

REACTIONS (3)
  - CONSTIPATION [None]
  - DECREASED APPETITE [None]
  - WEIGHT DECREASED [None]
